FAERS Safety Report 8904702 (Version 2)
Quarter: 2012Q4

REPORT INFORMATION
  Report Type: 
  Country: ES (occurrence: ES)
  Receive Date: 20121112
  Receipt Date: 20121121
  Transmission Date: 20130627
  Serious: No
  Sender: FDA-Public Use
  Company Number: ES-PFIZER INC-2012279352

PATIENT
  Sex: Male

DRUGS (4)
  1. CARDURAN NEO [Suspect]
     Indication: HYPERTENSION
     Dosage: 8 mg, UNK
     Dates: start: 2009, end: 201211
  2. CARDURAN NEO [Suspect]
     Indication: CARDIAC FAILURE
  3. SINTROM [Concomitant]
     Dosage: UNK
  4. LACEROL [Concomitant]
     Dosage: UNK

REACTIONS (2)
  - Blood pressure diastolic increased [Not Recovered/Not Resolved]
  - Medication residue [Unknown]
